FAERS Safety Report 25656488 (Version 1)
Quarter: 2025Q3

REPORT INFORMATION
  Report Type: Spontaneous
  Country: GB (occurrence: GB)
  Receive Date: 20250807
  Receipt Date: 20250807
  Transmission Date: 20251021
  Serious: Yes (Other)
  Sender: ELI LILLY AND COMPANY
  Company Number: None

PATIENT
  Sex: Male

DRUGS (1)
  1. TRULICITY [Suspect]
     Active Substance: DULAGLUTIDE
     Indication: Diabetes mellitus
     Route: 065
     Dates: end: 202309

REACTIONS (7)
  - Tissue injury [Unknown]
  - Joint injury [Unknown]
  - Gout [Unknown]
  - Blood urea increased [Recovered/Resolved with Sequelae]
  - Pain [Recovering/Resolving]
  - Tendonitis [Unknown]
  - Nodule [Unknown]
